FAERS Safety Report 15744268 (Version 2)
Quarter: 2019Q1

REPORT INFORMATION
  Report Type: Spontaneous
  Country: RU (occurrence: RU)
  Receive Date: 20181220
  Receipt Date: 20190102
  Transmission Date: 20190417
  Serious: Yes (Other)
  Sender: FDA-Public Use
  Company Number: RU-AMGEN-RUSSP2018179523

PATIENT
  Age: 73 Year
  Sex: Female
  Weight: 53 kg

DRUGS (6)
  1. NATECAL [Concomitant]
     Active Substance: CALCIUM CARBONATE\CHOLECALCIFEROL
     Dosage: 2 TABLETS ONCE A DAY
     Dates: start: 201502
  2. VITAMIN D [Concomitant]
     Active Substance: CHOLECALCIFEROL
     Dosage: UNK
  3. PROLIA [Suspect]
     Active Substance: DENOSUMAB
     Indication: OSTEOPOROSIS POSTMENOPAUSAL
     Dosage: 60 MG, Q6MO
     Route: 058
     Dates: start: 201502, end: 201711
  4. PROLIA [Suspect]
     Active Substance: DENOSUMAB
     Dosage: 60 MG, Q6MO
     Route: 058
     Dates: start: 201808
  5. ALFACALCIDOL [Concomitant]
     Active Substance: ALFACALCIDOL
     Indication: OSTEOPOROSIS POSTMENOPAUSAL
     Dosage: 0.25 MG, QD
     Dates: start: 201502
  6. CALCIUM [Concomitant]
     Active Substance: CALCIUM
     Dosage: UNK

REACTIONS (4)
  - Spinal compression fracture [Recovered/Resolved]
  - Disseminated intravascular coagulation [Unknown]
  - Uterine leiomyoma [Unknown]
  - Ovarian cyst [Unknown]

NARRATIVE: CASE EVENT DATE: 2018
